FAERS Safety Report 9417416 (Version 1)
Quarter: 2013Q3

REPORT INFORMATION
  Report Type: Spontaneous
  Country: CN (occurrence: None)
  Receive Date: 20130719
  Receipt Date: 20130719
  Transmission Date: 20140515
  Serious: Yes (Other)
  Sender: FDA-Public Use
  Company Number: FK201302459

PATIENT
  Age: 24 Year
  Sex: Male

DRUGS (2)
  1. INTRALIPID [Suspect]
     Indication: NUTRITIONAL SUPPLEMENTATION
     Dosage: 250 ML, 1 IN 1 D
     Route: 042
     Dates: start: 20110426, end: 20110516
  2. ANTICOAGULANTS (ANTICOAGULANT CIT PHOS DEX ADENINE) (ANTICOAGULANT CIT PHOS DEX ADENINE) [Concomitant]

REACTIONS (2)
  - Henoch-Schonlein purpura nephritis [None]
  - Henoch-Schonlein purpura [None]
